FAERS Safety Report 14391474 (Version 1)
Quarter: 2018Q1

REPORT INFORMATION
  Report Type: Spontaneous
  Country: DK (occurrence: DK)
  Receive Date: 20180116
  Receipt Date: 20180116
  Transmission Date: 20180509
  Serious: Yes (Other)
  Sender: FDA-Public Use
  Company Number: DK-EMD SERONO-E2B_90011416

PATIENT
  Age: 37 Year
  Sex: Female
  Weight: 60 kg

DRUGS (3)
  1. GONAL-F [Suspect]
     Active Substance: FOLLITROPIN
     Indication: INFERTILITY FEMALE
     Dosage: 450 IE/ 0,75 ML
     Dates: start: 20171205, end: 20171216
  2. OVITRELLE [Concomitant]
     Active Substance: CHORIOGONADOTROPIN ALFA
     Indication: INFERTILITY FEMALE
     Route: 065
     Dates: start: 20171216, end: 20171216
  3. ORGALUTRAN [Concomitant]
     Active Substance: GANIRELIX ACETATE
     Indication: INFERTILITY FEMALE
     Route: 065
     Dates: start: 20171216, end: 20171216

REACTIONS (5)
  - Ovarian enlargement [Not Recovered/Not Resolved]
  - Rash [Not Recovered/Not Resolved]
  - Ovarian hyperstimulation syndrome [Not Recovered/Not Resolved]
  - Abdominal pain upper [Not Recovered/Not Resolved]
  - Ascites [Not Recovered/Not Resolved]

NARRATIVE: CASE EVENT DATE: 20171218
